FAERS Safety Report 8341117-9 (Version None)
Quarter: 2012Q2

REPORT INFORMATION
  Report Type: 
  Country: None (occurrence: None)
  Receive Date: 20120507
  Receipt Date: 20111221
  Transmission Date: 20120825
  Serious: Yes (Other)
  Sender: FDA-Public Use
  Company Number: IT-GLAXOSMITHKLINE-B0772368A

PATIENT
  Age: 47 Year
  Sex: Male

DRUGS (1)
  1. BUPROPION HCL [Suspect]
     Indication: PANIC DISORDER
     Dosage: 300MG PER DAY
     Route: 065

REACTIONS (10)
  - DISTURBANCE IN ATTENTION [None]
  - AGITATION [None]
  - ANXIETY [None]
  - THERAPEUTIC RESPONSE UNEXPECTED [None]
  - MEMORY IMPAIRMENT [None]
  - COORDINATION ABNORMAL [None]
  - TOXICITY TO VARIOUS AGENTS [None]
  - CHEST PAIN [None]
  - COGNITIVE DISORDER [None]
  - ATTENTION DEFICIT/HYPERACTIVITY DISORDER [None]
